FAERS Safety Report 7685802-0 (Version None)
Quarter: 2011Q3

REPORT INFORMATION
  Report Type: 
  Country: None (occurrence: None)
  Receive Date: 20110815
  Receipt Date: 20110815
  Transmission Date: 20111222
  Serious: Yes (Life-Threatening)
  Sender: FDA-Public Use
  Company Number: None

PATIENT
  Age: 42 Year
  Sex: Female
  Weight: 99.79 kg

DRUGS (1)
  1. NUVARING [Suspect]
     Indication: PELVIC PAIN
     Dosage: LEAVE IN 3 WEEKS, REMOVE FOR 1
     Route: 067
     Dates: start: 20100220, end: 20110814

REACTIONS (3)
  - SLEEP APNOEA SYNDROME [None]
  - ATRIAL FIBRILLATION [None]
  - HYPERTENSION [None]
